FAERS Safety Report 7924405-7 (Version None)
Quarter: 2011Q4

REPORT INFORMATION
  Report Type: 
  Country: None (occurrence: None)
  Receive Date: 20111117
  Receipt Date: 20110322
  Transmission Date: 20120403
  Serious: No
  Sender: FDA-Public Use
  Company Number: US-AMGEN-USASP2011015553

PATIENT
  Sex: Female

DRUGS (2)
  1. ENBREL [Suspect]
     Indication: ANKYLOSING SPONDYLITIS
     Dosage: 50 MG, QWK
     Dates: start: 20101201
  2. ENBREL [Suspect]
     Indication: PSORIASIS

REACTIONS (5)
  - SWELLING FACE [None]
  - ERYTHEMA [None]
  - PRURITUS [None]
  - THERAPEUTIC RESPONSE DECREASED [None]
  - SINUSITIS [None]
